FAERS Safety Report 4928131-8 (Version None)
Quarter: 2006Q1

REPORT INFORMATION
  Report Type: 
  Country: None (occurrence: None)
  Receive Date: 20060223
  Receipt Date: 20060201
  Transmission Date: 20060701
  Serious: Yes (Hospitalization)
  Sender: FDA-Public Use
  Company Number: JP200602000312

PATIENT
  Age: 74 Year
  Sex: Female

DRUGS (1)
  1. EVISTA [Suspect]
     Indication: OSTEOPOROSIS
     Dosage: 60 MG, DAILY (1/D), ORAL
     Route: 048
     Dates: start: 20041201, end: 20050130

REACTIONS (3)
  - LUMBAR SPINAL STENOSIS [None]
  - LUMBAR VERTEBRAL FRACTURE [None]
  - SPINAL COMPRESSION FRACTURE [None]
